FAERS Safety Report 20459841 (Version 2)
Quarter: 2022Q2

REPORT INFORMATION
  Report Type: Other
  Country: US (occurrence: None)
  Receive Date: 20220211
  Receipt Date: 20220412
  Transmission Date: 20220721
  Serious: Yes (Hospitalization)
  Sender: FDA-Public Use
  Company Number: US-ROCHE-3014762

PATIENT
  Sex: Female
  Weight: 91.708 kg

DRUGS (9)
  1. OCREVUS [Suspect]
     Active Substance: OCRELIZUMAB
     Indication: Relapsing multiple sclerosis
     Dosage: 300 MG ON DAY 1 AND 15 THEN 600 MG EVERY 6 MONTH; LAST DOSE: 11-MAY-2021.
     Route: 042
     Dates: start: 202009
  2. OCREVUS [Suspect]
     Active Substance: OCRELIZUMAB
     Route: 042
     Dates: start: 20190918
  3. LAMOTRIGINE [Suspect]
     Active Substance: LAMOTRIGINE
     Indication: Product used for unknown indication
     Route: 065
  4. COPAXONE [Concomitant]
     Active Substance: GLATIRAMER ACETATE
  5. TRAMADOL [Concomitant]
     Active Substance: TRAMADOL
  6. GABAPENTIN [Concomitant]
     Active Substance: GABAPENTIN
  7. BACLOFEN [Concomitant]
     Active Substance: BACLOFEN
  8. TYLENOL [Concomitant]
     Active Substance: ACETAMINOPHEN
  9. IBUPROFEN [Concomitant]
     Active Substance: IBUPROFEN

REACTIONS (4)
  - COVID-19 [Recovered/Resolved]
  - Urticaria [Not Recovered/Not Resolved]
  - Pain [Not Recovered/Not Resolved]
  - Muscle spasms [Recovered/Resolved]

NARRATIVE: CASE EVENT DATE: 20210101
